FAERS Safety Report 8495634-1 (Version None)
Quarter: 2012Q3

REPORT INFORMATION
  Report Type: 
  Country: None (occurrence: None)
  Receive Date: 20120709
  Receipt Date: 20120629
  Transmission Date: 20120928
  Serious: Yes (Other)
  Sender: FDA-Public Use
  Company Number: AT-GLAXOSMITHKLINE-A0974250A

PATIENT
  Age: 78 Year
  Sex: Female
  Weight: 77 kg

DRUGS (4)
  1. UNKNOWN [Concomitant]
     Route: 048
  2. UNKNOWN [Concomitant]
     Indication: ARTERIOSCLEROSIS
     Route: 048
  3. ALLIUM SATIVUM [Concomitant]
     Indication: MEMORY IMPAIRMENT
     Dosage: 1TAB PER DAY
     Route: 048
  4. NICORETTE [Suspect]
     Indication: SMOKING CESSATION THERAPY
     Route: 050
     Dates: start: 20120307, end: 20120307

REACTIONS (4)
  - SYNCOPE [None]
  - PRODUCT QUALITY ISSUE [None]
  - NAUSEA [None]
  - WRONG TECHNIQUE IN DRUG USAGE PROCESS [None]
